FAERS Safety Report 9550330 (Version 1)
Quarter: 2013Q3

REPORT INFORMATION
  Report Type: Spontaneous
  Country: US (occurrence: US)
  Receive Date: 20130924
  Receipt Date: 20130924
  Transmission Date: 20140515
  Serious: No
  Sender: FDA-Public Use
  Company Number: US-SANOFI-AVENTIS-2013SA085918

PATIENT
  Sex: Female

DRUGS (1)
  1. AUBAGIO [Suspect]
     Dosage: PRODUCT STOPED ON 21ST JUNE
     Route: 048

REACTIONS (2)
  - Adverse drug reaction [Unknown]
  - Drug level increased [Recovering/Resolving]
